FAERS Safety Report 8305615-6 (Version None)
Quarter: 2012Q2

REPORT INFORMATION
  Report Type: 
  Country: None (occurrence: None)
  Receive Date: 20120418
  Receipt Date: 20120404
  Transmission Date: 20120825
  Serious: Yes (Hospitalization)
  Sender: FDA-Public Use
  Company Number: 2012MA004816

PATIENT
  Age: 76 Year
  Sex: Male

DRUGS (6)
  1. WARFARIN SODIUM [Concomitant]
  2. OMEPRAZOLE [Concomitant]
  3. METOPROLOL TARTRATE [Concomitant]
  4. DIAZEPAM [Suspect]
     Indication: PRODUCT USED FOR UNKNOWN INDICATION
     Dosage: 10 MG;PO
     Route: 048
     Dates: start: 20120127, end: 20120227
  5. AMIODARONE HCL [Suspect]
     Indication: PRODUCT USED FOR UNKNOWN INDICATION
     Dosage: 200 MG;QD;PO
     Route: 048
     Dates: start: 20111130, end: 20120227
  6. ENALAPRIL MALEATE [Concomitant]

REACTIONS (5)
  - DYSARTHRIA [None]
  - DIZZINESS [None]
  - FATIGUE [None]
  - MUSCULAR WEAKNESS [None]
  - VOMITING [None]
